FAERS Safety Report 19804337 (Version 2)
Quarter: 2022Q3

REPORT INFORMATION
  Report Type: Spontaneous
  Country: US (occurrence: None)
  Receive Date: 20210908
  Receipt Date: 20220907
  Transmission Date: 20221027
  Serious: No
  Sender: FDA-Public Use
  Company Number: US-FARMAPROD-202105-0743

PATIENT
  Sex: Female
  Weight: 90.800 kg

DRUGS (6)
  1. OXERVATE [Suspect]
     Active Substance: CENEGERMIN-BKBJ
     Indication: Neurotrophic keratopathy
     Route: 047
     Dates: start: 20210506, end: 20210701
  2. OXERVATE [Suspect]
     Active Substance: CENEGERMIN-BKBJ
     Route: 047
     Dates: start: 20210709, end: 20210901
  3. OXERVATE [Suspect]
     Active Substance: CENEGERMIN-BKBJ
     Route: 047
     Dates: start: 20210902, end: 20211028
  4. OXERVATE [Suspect]
     Active Substance: CENEGERMIN-BKBJ
     Route: 047
     Dates: start: 20211101
  5. OFLOXACIN [Concomitant]
     Active Substance: OFLOXACIN
  6. SERUM [Concomitant]

REACTIONS (6)
  - Eye pain [Not Recovered/Not Resolved]
  - Periorbital pain [Unknown]
  - Nausea [Unknown]
  - Product dose omission issue [Unknown]
  - Eye swelling [Unknown]
  - Bronchitis [Unknown]
